FAERS Safety Report 22105379 (Version 6)
Quarter: 2024Q1

REPORT INFORMATION
  Report Type: Report from Study
  Country: US (occurrence: US)
  Receive Date: 20230317
  Receipt Date: 20240305
  Transmission Date: 20240409
  Serious: Yes (Hospitalization)
  Sender: FDA-Public Use
  Company Number: US-ACADIA PHARMACEUTICALS INC.-ACA-2023-PIM-000728

PATIENT
  Age: 84 Year
  Sex: Male

DRUGS (1)
  1. NUPLAZID [Suspect]
     Active Substance: PIMAVANSERIN TARTRATE
     Indication: Parkinson^s disease psychosis
     Dosage: 34 MILLIGRAM, QD
     Route: 048

REACTIONS (11)
  - Delusion [Unknown]
  - Urinary tract infection [Recovered/Resolved]
  - Bladder catheterisation [Recovered/Resolved]
  - Delusion [Recovered/Resolved]
  - Life expectancy shortened [Not Recovered/Not Resolved]
  - Dysgraphia [Unknown]
  - Reading disorder [Unknown]
  - Cognitive disorder [Unknown]
  - Condition aggravated [Not Recovered/Not Resolved]
  - Hallucination [Recovered/Resolved]
  - Confusional state [Not Recovered/Not Resolved]

NARRATIVE: CASE EVENT DATE: 20231222
